FAERS Safety Report 12892030 (Version 5)
Quarter: 2016Q4

REPORT INFORMATION
  Report Type: Report from Study
  Country: CZ (occurrence: CZ)
  Receive Date: 20161028
  Receipt Date: 20161227
  Transmission Date: 20170207
  Serious: Yes (Hospitalization)
  Sender: FDA-Public Use
  Company Number: CZ-ROCHE-1845470

PATIENT
  Age: 68 Year
  Sex: Male
  Weight: 78 kg

DRUGS (55)
  1. VENETOCLAX [Suspect]
     Active Substance: VENETOCLAX
     Indication: B-CELL LYMPHOMA
     Dosage: MOST RECENT DOSE (400 MG) PRIOR TO ONSET OF EVENT WAS 16/OCT/2016
     Route: 048
     Dates: start: 20161010
  2. LATANOPROSTUM [Concomitant]
     Indication: GLAUCOMA
  3. BISULEPIN HYDROCHLORIDE [Concomitant]
     Active Substance: BISULEPIN HYDROCHLORIDE
     Indication: INFUSION RELATED REACTION
     Route: 065
     Dates: start: 20161027, end: 20161027
  4. FILGRASTIM [Concomitant]
     Active Substance: FILGRASTIM
     Indication: NEUTROPENIA
     Route: 065
     Dates: start: 20161014, end: 20161023
  5. METAMIZOLUM NATRICUM [Concomitant]
     Route: 065
     Dates: start: 20161024, end: 20161024
  6. DOXORUBICIN [Suspect]
     Active Substance: DOXORUBICIN
     Indication: B-CELL LYMPHOMA
     Dosage: MOST RECENT DOSE (98 MG) PRIOR TO ONSET OF EVENT WAS 08/OCT/2016 AT 02:15.
     Route: 042
     Dates: start: 20161008
  7. VALSARTAN/HYDROCHLOROTHIAZIDE AHCL [Concomitant]
     Indication: HYPERTENSION
     Route: 065
     Dates: end: 20161004
  8. NORMAL SALINE [Concomitant]
     Active Substance: SODIUM CHLORIDE
     Route: 065
     Dates: start: 20161021, end: 20161029
  9. PARACETAMOLUM [Concomitant]
     Active Substance: ACETAMINOPHEN
     Indication: PREMEDICATION
     Route: 065
     Dates: start: 20161027, end: 20161027
  10. BISULEPIN HYDROCHLORIDE [Concomitant]
     Active Substance: BISULEPIN HYDROCHLORIDE
     Indication: PREMEDICATION
     Route: 065
     Dates: start: 20161010, end: 20161010
  11. GRANISETRON [Concomitant]
     Active Substance: GRANISETRON
     Indication: PROPHYLAXIS OF NAUSEA AND VOMITING
     Route: 065
     Dates: start: 20161011, end: 20161011
  12. CEFUROXIME AXETIL. [Concomitant]
     Active Substance: CEFUROXIME AXETIL
     Indication: INFECTION PROPHYLAXIS
     Route: 065
     Dates: start: 20161014, end: 20161015
  13. LIDOCAINE/PEPPERMINT OIL/MAALOX [Concomitant]
     Indication: MUCOSAL INFLAMMATION
     Route: 065
     Dates: start: 20161018, end: 20161022
  14. ZOLPIDEM TARTRATE. [Concomitant]
     Active Substance: ZOLPIDEM TARTRATE
     Indication: PROPHYLAXIS
     Route: 065
     Dates: start: 20161023, end: 20161023
  15. GLYCEROLUM [Concomitant]
     Indication: CONSTIPATION
     Route: 065
     Dates: start: 20161022, end: 20161022
  16. VINCRISTINE [Suspect]
     Active Substance: VINCRISTINE
     Indication: B-CELL LYMPHOMA
     Dosage: MOST RECENT DOSE (2 MG) PRIOR TO ONSET OF EVENT WAS 08/OCT/2016 AT 02:55.
     Route: 042
     Dates: start: 20161008
  17. FORMOTEROL FUMARATE DIHYDRATE [Concomitant]
     Active Substance: FORMOTEROL FUMARATE DIHYDRATE
     Indication: ASTHMA
     Route: 065
     Dates: start: 2010
  18. FILGRASTIM [Concomitant]
     Active Substance: FILGRASTIM
     Indication: PROPHYLAXIS
     Route: 065
     Dates: start: 20161013, end: 20161013
  19. FILGRASTIM [Concomitant]
     Active Substance: FILGRASTIM
     Route: 065
     Dates: start: 20161023, end: 20161023
  20. METAMIZOLUM NATRICUM [Concomitant]
     Indication: PYREXIA
     Route: 065
     Dates: start: 20161023
  21. METHOTREXATUM [Concomitant]
     Indication: PROPHYLAXIS
     Route: 065
     Dates: start: 20161027, end: 20161027
  22. METOCLOPRAMIDI HYDROCHLORIDUM [Concomitant]
     Indication: NAUSEA
     Route: 065
     Dates: start: 20161004, end: 20161004
  23. AMLODIPINUM [Concomitant]
     Indication: HYPERTENSION
     Route: 065
     Dates: start: 20161011, end: 20161013
  24. BENZYDAMINE HYDROCHLORIDE [Concomitant]
     Active Substance: BENZYDAMINE HYDROCHLORIDE
     Indication: MUCOSAL INFLAMMATION
     Route: 065
     Dates: start: 20161014, end: 20161026
  25. FILGRASTIM [Concomitant]
     Active Substance: FILGRASTIM
     Route: 065
     Dates: start: 20161021, end: 20161022
  26. THIETHYLPERAZINE MALEATE [Concomitant]
     Active Substance: THIETHYLPERAZINE MALEATE
     Indication: NAUSEA
     Route: 065
     Dates: start: 20161018, end: 20161021
  27. CALCIUM POLYSTYRENE SULFONATE [Concomitant]
     Active Substance: CALCIUM POLYSTYRENE SULFONATE
     Indication: PROPHYLAXIS
     Route: 065
     Dates: start: 20161004, end: 20161006
  28. RITUXIMAB [Suspect]
     Active Substance: RITUXIMAB
     Indication: B-CELL LYMPHOMA
     Dosage: MOST RECENT DOSE (735 MG) PRIOR TO ONSET OF EVENT WAS 07/OCT/2016 AT 17:30
     Route: 042
     Dates: start: 20161007
  29. KETOTIFEN FUMARATE. [Concomitant]
     Active Substance: KETOTIFEN FUMARATE
     Indication: ASTHMA
     Route: 065
     Dates: start: 2010
  30. BUDESONIDUM [Concomitant]
     Active Substance: BUDESONIDE
     Indication: ASTHMA
  31. NORMAL SALINE [Concomitant]
     Active Substance: SODIUM CHLORIDE
     Indication: PROPHYLAXIS
     Route: 065
     Dates: start: 20161004, end: 20161011
  32. OMEPRAZOLUM [Concomitant]
     Indication: PROPHYLAXIS
     Route: 065
     Dates: start: 20161004, end: 20161120
  33. FUROSEMIDUM [Concomitant]
     Active Substance: FUROSEMIDE
     Route: 065
     Dates: start: 20161023, end: 20161025
  34. FUROSEMIDUM [Concomitant]
     Active Substance: FUROSEMIDE
     Route: 065
     Dates: start: 20161027, end: 20161030
  35. GRANISETRON [Concomitant]
     Active Substance: GRANISETRON
     Route: 065
     Dates: start: 20161027, end: 20161027
  36. FILGRASTIM [Concomitant]
     Active Substance: FILGRASTIM
     Route: 065
     Dates: start: 20161027, end: 20161030
  37. SALBUTAMOLI SULFAS [Concomitant]
     Indication: COUGH
     Route: 065
     Dates: start: 201612
  38. CYCLOPHOSPHAMIDE. [Suspect]
     Active Substance: CYCLOPHOSPHAMIDE
     Indication: B-CELL LYMPHOMA
     Dosage: MOST RECENT DOSE (1470 MG) PRIOR TO ONSET OF EVENT WAS 08/OCT/2016 AT 01:15
     Route: 042
     Dates: start: 20161008
  39. HYDROCORTISONE. [Concomitant]
     Active Substance: HYDROCORTISONE
     Indication: PREMEDICATION
     Route: 065
     Dates: start: 20161010, end: 20161010
  40. HYDROCORTISONE. [Concomitant]
     Active Substance: HYDROCORTISONE
     Indication: INFUSION RELATED REACTION
     Route: 065
     Dates: start: 20161027, end: 20161027
  41. FUROSEMIDUM [Concomitant]
     Active Substance: FUROSEMIDE
     Indication: PROPHYLAXIS
     Route: 065
     Dates: start: 20161006, end: 20161013
  42. CEFTRIAXONE DISODIUM [Concomitant]
     Active Substance: CEFTRIAXONE
     Indication: INFECTION PROPHYLAXIS
     Route: 065
     Dates: start: 20161007, end: 20161013
  43. FILGRASTIM [Concomitant]
     Active Substance: FILGRASTIM
     Route: 065
     Dates: start: 20161218
  44. CEFEPIME HYDROCHLORIDE. [Concomitant]
     Active Substance: CEFEPIME HYDROCHLORIDE
     Indication: PROPHYLAXIS
     Route: 065
     Dates: start: 20161005, end: 20161005
  45. VALSARTAN/HYDROCHLOROTHIAZIDE AHCL [Concomitant]
     Route: 065
     Dates: end: 20161014
  46. PREDNISONUM [Concomitant]
     Active Substance: PREDNISONE
     Indication: PREMEDICATION
     Route: 065
     Dates: start: 20161005, end: 20161006
  47. NADROPARINUM CALCICUM [Concomitant]
     Indication: THROMBOSIS PROPHYLAXIS
     Route: 065
     Dates: start: 20161004, end: 20161013
  48. PARACETAMOLUM [Concomitant]
     Active Substance: ACETAMINOPHEN
     Indication: PREMEDICATION
     Route: 065
     Dates: start: 20161010, end: 20161010
  49. PREDNISONE. [Suspect]
     Active Substance: PREDNISONE
     Indication: B-CELL LYMPHOMA
     Dosage: MOST RECENT DOSE (100 OTHER) PRIOR TO ONSET OF EVENT WAS 11/OCT/2016
     Route: 048
     Dates: start: 20161007
  50. SALBUTAMOLI SULFAS [Concomitant]
     Indication: ASTHMA
     Route: 065
     Dates: start: 2010
  51. GRANISETRON [Concomitant]
     Active Substance: GRANISETRON
     Route: 065
     Dates: start: 20161004, end: 20161004
  52. RABEPRAZOLUM NATRICUM [Concomitant]
     Indication: PROPHYLAXIS
     Route: 065
     Dates: start: 20161003
  53. ALLOPURINOL. [Concomitant]
     Active Substance: ALLOPURINOL
     Indication: PROPHYLAXIS
     Route: 065
     Dates: start: 20161004
  54. LACTULOSE. [Concomitant]
     Active Substance: LACTULOSE
     Indication: PROPHYLAXIS
     Route: 065
     Dates: start: 20161008, end: 20161008
  55. ALPRAZOLAMUM [Concomitant]
     Indication: PROPHYLAXIS
     Route: 065
     Dates: start: 20161012, end: 20161012

REACTIONS (1)
  - Cellulitis [Recovered/Resolved]

NARRATIVE: CASE EVENT DATE: 20161021
